FAERS Safety Report 4332142-3 (Version None)
Quarter: 2004Q1

REPORT INFORMATION
  Report Type: 
  Country: None (occurrence: None)
  Receive Date: 20040329
  Receipt Date: 20040316
  Transmission Date: 20041129
  Serious: Yes (Hospitalization)
  Sender: FDA-Public Use
  Company Number: 163-20785-04030560

PATIENT
  Age: 60 Year
  Sex: Male

DRUGS (6)
  1. THALIDOMIDE (THALIDOMIDE) (CAPSULES) [Suspect]
     Indication: MULTIPLE MYELOMA
     Dosage: ORAL
     Route: 048
     Dates: start: 20020701
  2. ZOLEDRONIC ACID (ZOLEDRONIC ACID) (INJECTION) [Suspect]
     Indication: MULTIPLE MYELOMA
     Dosage: 4 MG EVERY MONTH INFUSION
     Dates: start: 20020101
  3. CYCLOPHOSPHAMIDE [Concomitant]
  4. PREDNISONE [Concomitant]
  5. ALLOPURINOL [Concomitant]
  6. PAMIDRONATE (PAMIDRONATE SODIUM) [Concomitant]

REACTIONS (5)
  - AUTOLOGOUS BONE MARROW TRANSPLANTATION THERAPY [None]
  - DRUG INTERACTION [None]
  - HAEMODIALYSIS [None]
  - MULTIPLE MYELOMA [None]
  - RENAL FAILURE ACUTE [None]
